FAERS Safety Report 8025365-3 (Version None)
Quarter: 2012Q1

REPORT INFORMATION
  Report Type: 
  Country: None (occurrence: None)
  Receive Date: 20120105
  Receipt Date: 20120103
  Transmission Date: 20120608
  Serious: Yes (Death, Hospitalization, Other)
  Sender: FDA-Public Use
  Company Number: US-PFIZER INC-2011297416

PATIENT
  Sex: Male
  Weight: 63.492 kg

DRUGS (1)
  1. XALKORI [Suspect]
     Indication: LUNG NEOPLASM MALIGNANT
     Dosage: UNK
     Route: 048
     Dates: start: 20111001, end: 20111121

REACTIONS (4)
  - PNEUMONIA [None]
  - LUNG CANCER METASTATIC [None]
  - THROMBOSIS [None]
  - DISEASE PROGRESSION [None]
